FAERS Safety Report 6727612-4 (Version None)
Quarter: 2010Q2

REPORT INFORMATION
  Report Type: 
  Country: None (occurrence: None)
  Receive Date: 20100512
  Receipt Date: 20100312
  Transmission Date: 20101027
  Serious: No
  Sender: FDA-Public Use
  Company Number: 1000012460

PATIENT
  Age: 64 Year
  Sex: Female

DRUGS (11)
  1. SAVELLA [Suspect]
     Indication: FIBROMYALGIA
     Dosage: SEE IMAGE
     Route: 048
     Dates: start: 20100304, end: 20100304
  2. SAVELLA [Suspect]
     Indication: FIBROMYALGIA
     Dosage: SEE IMAGE
     Route: 048
     Dates: start: 20100305, end: 20100306
  3. SAVELLA [Suspect]
     Indication: FIBROMYALGIA
     Dosage: SEE IMAGE
     Route: 048
     Dates: start: 20100307, end: 20100310
  4. SAVELLA [Suspect]
     Indication: FIBROMYALGIA
     Dosage: SEE IMAGE
     Route: 048
     Dates: start: 20100311
  5. LANTUS [Concomitant]
  6. PROTONIX [Concomitant]
  7. ACYCLOVIR [Concomitant]
  8. EVOXAC [Concomitant]
  9. HUMALOG [Concomitant]
  10. GABAPENTIN [Concomitant]
  11. HUMIRA [Concomitant]

REACTIONS (3)
  - FATIGUE [None]
  - FLUSHING [None]
  - VISION BLURRED [None]
